FAERS Safety Report 22021745 (Version 2)
Quarter: 2023Q2

REPORT INFORMATION
  Report Type: Spontaneous
  Country: US (occurrence: US)
  Receive Date: 20230222
  Receipt Date: 20230414
  Transmission Date: 20230721
  Serious: No
  Sender: FDA-Public Use
  Company Number: US-MICRO LABS LIMITED-ML2023-00572

PATIENT
  Age: 85 Year
  Sex: Male

DRUGS (2)
  1. DORZOLAMIDE\TIMOLOL [Suspect]
     Active Substance: DORZOLAMIDE\TIMOLOL
     Indication: Glaucoma
     Dosage: 2 DROPS IN BOTH THE EYES
     Route: 047
  2. ZIOPTAN [Concomitant]
     Active Substance: TAFLUPROST

REACTIONS (2)
  - Product quality issue [Unknown]
  - Vision blurred [Unknown]
